FAERS Safety Report 8839421 (Version 1)
Quarter: 2012Q4

REPORT INFORMATION
  Report Type: Spontaneous
  Country: US (occurrence: None)
  Receive Date: 20121012
  Receipt Date: 20121012
  Transmission Date: 20130627
  Serious: Yes (Disabling)
  Sender: FDA-Public Use
  Company Number: None

PATIENT
  Age: 52 Year
  Sex: Female
  Weight: 81.65 kg

DRUGS (1)
  1. ENBREL [Suspect]
     Indication: BACK PAIN
     Dates: start: 20030701, end: 20060701

REACTIONS (2)
  - Lung adenocarcinoma metastatic [None]
  - Squamous cell carcinoma of skin [None]
